FAERS Safety Report 7586597 (Version 4)
Quarter: 2012Q4

REPORT INFORMATION
  Report Type: Spontaneous
  Country: NL (occurrence: None)
  Receive Date: 20100903
  Receipt Date: 20120926
  Transmission Date: 20130627
  Serious: Yes (Hospitalization, Other)
  Sender: FDA-Public Use
  Company Number: 2010AP001792

PATIENT
  Age: 78 Year
  Sex: Female

DRUGS (4)
  1. HYDROCHLOROTHIAZIDE [Suspect]
     Indication: HYPERTENSION
  2. ATENOLOL [Suspect]
     Indication: HYPERTENSION
  3. NITROFURANTOIN [Suspect]
  4. NIFEDIPINE [Concomitant]

REACTIONS (11)
  - Hyponatraemia [None]
  - Hypoaesthesia [None]
  - Tremor [None]
  - Diarrhoea [None]
  - Haematuria [None]
  - Confusional state [None]
  - Depressed level of consciousness [None]
  - Oedema peripheral [None]
  - Delirium [None]
  - Cerebrovascular accident [None]
  - Hypokalaemia [None]
